FAERS Safety Report 8231614-9 (Version None)
Quarter: 2012Q1

REPORT INFORMATION
  Report Type: 
  Country: None (occurrence: None)
  Receive Date: 20120323
  Receipt Date: 20120313
  Transmission Date: 20120608
  Serious: Yes (Other)
  Sender: FDA-Public Use
  Company Number: US-ELI_LILLY_AND_COMPANY-US201202000523

PATIENT
  Sex: Female

DRUGS (3)
  1. FORTEO [Suspect]
     Dosage: 20 UG, QD
     Route: 065
     Dates: start: 20120312
  2. FORTEO [Suspect]
     Indication: OSTEOPOROSIS
     Dosage: 20 UG, QD
     Route: 065
     Dates: start: 20111201
  3. FORTEO [Suspect]
     Dosage: 20 UG, QD
     Route: 065
     Dates: end: 20120308

REACTIONS (12)
  - PELVIC FRACTURE [None]
  - DRUG DOSE OMISSION [None]
  - GAIT DISTURBANCE [None]
  - FATIGUE [None]
  - HEADACHE [None]
  - NAUSEA [None]
  - POSTURE ABNORMAL [None]
  - SPINAL DISORDER [None]
  - ARTHRALGIA [None]
  - EATING DISORDER [None]
  - RASH PRURITIC [None]
  - NEURALGIA [None]
